FAERS Safety Report 20562491 (Version 1)
Quarter: 2022Q1

REPORT INFORMATION
  Report Type: Report from Study
  Country: CA (occurrence: CA)
  Receive Date: 20220307
  Receipt Date: 20220307
  Transmission Date: 20220423
  Serious: Yes (Other)
  Sender: FDA-Public Use
  Company Number: CA-OTSUKA-2021_043590

PATIENT
  Age: 71 Year
  Sex: Male

DRUGS (1)
  1. CEDAZURIDINE\DECITABINE [Suspect]
     Active Substance: CEDAZURIDINE\DECITABINE
     Indication: Chronic myelomonocytic leukaemia
     Dosage: (35 MG DECITABINE AND 100 MG CEDAZURIDINE)
     Route: 065
     Dates: start: 20211202

REACTIONS (10)
  - Liver injury [Unknown]
  - Tremor [Unknown]
  - Alopecia [Unknown]
  - Feeling abnormal [Unknown]
  - Peripheral swelling [Unknown]
  - Constipation [Unknown]
  - Skin irritation [Unknown]
  - Insomnia [Unknown]
  - Fatigue [Unknown]
  - Rash macular [Unknown]

NARRATIVE: CASE EVENT DATE: 20211201
